FAERS Safety Report 22197576 (Version 1)
Quarter: 2023Q2

REPORT INFORMATION
  Report Type: Spontaneous
  Country: US (occurrence: None)
  Receive Date: 20230411
  Receipt Date: 20230411
  Transmission Date: 20230722
  Serious: Yes (Disabling, Other)
  Sender: FDA-Public Use
  Company Number: None

PATIENT
  Age: 23 Year
  Sex: Female
  Weight: 46.8 kg

DRUGS (1)
  1. DAXXIFY [Suspect]
     Active Substance: DAXIBOTULINUMTOXIN A-LANM
     Indication: Skin wrinkling
     Dates: start: 20230313

REACTIONS (4)
  - Eyelid ptosis [None]
  - Pain [None]
  - Mental impairment [None]
  - Emotional distress [None]

NARRATIVE: CASE EVENT DATE: 20230313
